FAERS Safety Report 24266748 (Version 1)
Quarter: 2024Q3

REPORT INFORMATION
  Report Type: Spontaneous
  Country: US (occurrence: US)
  Receive Date: 20240830
  Receipt Date: 20240830
  Transmission Date: 20241017
  Serious: No
  Sender: ELI LILLY AND CO
  Company Number: US-ELI_LILLY_AND_COMPANY-US202408018422

PATIENT
  Age: 86 Year
  Sex: Female

DRUGS (1)
  1. VERZENIO [Suspect]
     Active Substance: ABEMACICLIB
     Indication: Breast cancer female
     Dosage: 100 MG, BID
     Route: 048
     Dates: start: 20240226

REACTIONS (10)
  - Appetite disorder [Unknown]
  - Taste disorder [Unknown]
  - Weight decreased [Unknown]
  - Balance disorder [Unknown]
  - Fall [Unknown]
  - Head injury [Unknown]
  - Pain [Unknown]
  - Dizziness [Unknown]
  - Asthenia [Unknown]
  - Nausea [Unknown]

NARRATIVE: CASE EVENT DATE: 20240701
